FAERS Safety Report 9712712 (Version 2)
Quarter: 2013Q4

REPORT INFORMATION
  Report Type: Spontaneous
  Country: US (occurrence: US)
  Receive Date: 20131126
  Receipt Date: 20131126
  Transmission Date: 20140711
  Serious: No
  Sender: FDA-Public Use
  Company Number: US-BRISTOL-MYERS SQUIBB COMPANY-18910455

PATIENT
  Age: 47 Year
  Sex: Female
  Weight: 70.29 kg

DRUGS (3)
  1. BYDUREON [Suspect]
     Indication: TYPE 2 DIABETES MELLITUS
     Dosage: THERAPY ON 16MAY13?LOT NO:73228,EXPDT:DEC2015
     Route: 058
     Dates: start: 20130502
  2. METFORMIN HCL [Suspect]
  3. LEVEMIR [Suspect]

REACTIONS (5)
  - Blood glucose increased [Unknown]
  - Injection site haemorrhage [Unknown]
  - Injection site extravasation [Unknown]
  - Drug administration error [Unknown]
  - Product quality issue [Unknown]
